FAERS Safety Report 9784103 (Version 1)
Quarter: 2013Q4

REPORT INFORMATION
  Report Type: Spontaneous
  Country: IT (occurrence: IT)
  Receive Date: 20131226
  Receipt Date: 20131226
  Transmission Date: 20140711
  Serious: Yes (Other)
  Sender: FDA-Public Use
  Company Number: IT-PFIZER INC-2013367417

PATIENT
  Age: 3 Year
  Sex: Male

DRUGS (1)
  1. ZITROMAX [Suspect]
     Indication: COUGH
     Dosage: 5 ML, TOTAL
     Route: 048

REACTIONS (1)
  - Haematemesis [Recovered/Resolved]
